FAERS Safety Report 8448729-2 (Version None)
Quarter: 2012Q2

REPORT INFORMATION
  Report Type: 
  Country: None (occurrence: None)
  Receive Date: 20120619
  Receipt Date: 20120614
  Transmission Date: 20120825
  Serious: Yes (Other)
  Sender: FDA-Public Use
  Company Number: VE-PFIZER INC-2012136994

PATIENT
  Age: 75 Year
  Sex: Male

DRUGS (2)
  1. LIPITOR [Suspect]
     Indication: HYPERCHOLESTEROLAEMIA
     Dosage: 20 MG, 1X/DAY
     Route: 048
  2. DIOVAN [Concomitant]
     Indication: HYPERTENSION
     Dosage: 80 MG, 1X/DAY
     Route: 048

REACTIONS (1)
  - ARTERIAL OCCLUSIVE DISEASE [None]
